FAERS Safety Report 22362367 (Version 1)
Quarter: 2023Q2

REPORT INFORMATION
  Report Type: Report from Study
  Country: IT (occurrence: IT)
  Receive Date: 20230524
  Receipt Date: 20230524
  Transmission Date: 20230721
  Serious: Yes (Hospitalization)
  Sender: FDA-Public Use
  Company Number: IT-MYLANLABS-2023M1053972

PATIENT
  Age: 48 Year
  Sex: Female

DRUGS (3)
  1. TRIAMCINOLONE [Suspect]
     Active Substance: TRIAMCINOLONE
     Indication: Hidradenitis
     Dosage: UNK
     Route: 026
  2. RIFAMPIN [Suspect]
     Active Substance: RIFAMPIN
     Indication: Hidradenitis
     Dosage: UNK,WEEK 6 TO WEEK 14
     Route: 065
  3. CLINDAMYCIN [Suspect]
     Active Substance: CLINDAMYCIN
     Indication: Hidradenitis
     Dosage: UNK, WEEK 6 TO WEEK 14
     Route: 065

REACTIONS (1)
  - Drug ineffective [Unknown]
